FAERS Safety Report 12598483 (Version 7)
Quarter: 2016Q4

REPORT INFORMATION
  Report Type: Report from Study
  Country: US (occurrence: US)
  Receive Date: 20160726
  Receipt Date: 20161129
  Transmission Date: 20170207
  Serious: Yes (Hospitalization, Other)
  Sender: FDA-Public Use
  Company Number: US-EXELIXIS-CABO-16006729

PATIENT
  Sex: Male

DRUGS (13)
  1. ATIVAN [Concomitant]
     Active Substance: LORAZEPAM
  2. MS CONTIN [Concomitant]
     Active Substance: MORPHINE SULFATE
  3. ZOFRAN [Concomitant]
     Active Substance: ONDANSETRON HYDROCHLORIDE
  4. ENALAPRIL [Concomitant]
     Active Substance: ENALAPRIL
  5. FLOMAX [Concomitant]
     Active Substance: TAMSULOSIN HYDROCHLORIDE
  6. CABOMETYX [Suspect]
     Active Substance: CABOZANTINIB S-MALATE
     Indication: RENAL CANCER
     Dosage: 60 MG, QD
     Route: 048
     Dates: start: 20160626, end: 201607
  7. MORPHINE [Concomitant]
     Active Substance: MORPHINE
  8. MIRALAX [Concomitant]
     Active Substance: POLYETHYLENE GLYCOL 3350
  9. CABOMETYX [Suspect]
     Active Substance: CABOZANTINIB S-MALATE
     Dosage: 40 MG, QD
     Route: 048
     Dates: start: 201608, end: 20161012
  10. LEVOTHYROXINE. [Concomitant]
     Active Substance: LEVOTHYROXINE
  11. FINASTERID [Concomitant]
     Active Substance: FINASTERIDE
  12. METHADONE [Concomitant]
     Active Substance: METHADONE HYDROCHLORIDE
  13. VICODIN [Concomitant]
     Active Substance: ACETAMINOPHEN\HYDROCODONE BITARTRATE

REACTIONS (25)
  - Liver injury [Unknown]
  - Tumour obstruction [Not Recovered/Not Resolved]
  - Constipation [Recovering/Resolving]
  - Skin burning sensation [Not Recovered/Not Resolved]
  - Fatigue [Unknown]
  - Malignant neoplasm progression [Unknown]
  - Tongue discomfort [Unknown]
  - Blood urine present [Unknown]
  - Diarrhoea [Unknown]
  - Nausea [Recovering/Resolving]
  - Alopecia [Unknown]
  - Feeling hot [Not Recovered/Not Resolved]
  - Hair colour changes [Unknown]
  - Stomatitis [Not Recovered/Not Resolved]
  - Decreased appetite [Unknown]
  - Oral discomfort [Not Recovered/Not Resolved]
  - Dry skin [Not Recovered/Not Resolved]
  - Skin ulcer [Not Recovered/Not Resolved]
  - Restlessness [Unknown]
  - Lip swelling [Unknown]
  - Blister [Unknown]
  - Pruritus [Unknown]
  - Pain in extremity [Unknown]
  - Dysphagia [Unknown]
  - Nasal discomfort [Unknown]
